FAERS Safety Report 11316668 (Version 1)
Quarter: 2015Q3

REPORT INFORMATION
  Report Type: Report from Study
  Country: AR (occurrence: AR)
  Receive Date: 20150728
  Receipt Date: 20150728
  Transmission Date: 20151125
  Serious: Yes (Other)
  Sender: FDA-Public Use
  Company Number: PHHY2015AR087918

PATIENT
  Age: 71 Year
  Sex: Female

DRUGS (2)
  1. DIOVAN [Suspect]
     Active Substance: VALSARTAN
     Indication: HYPERTENSION
     Dosage: 80 MG, QD
     Route: 048
  2. DIOVAN [Suspect]
     Active Substance: VALSARTAN
     Dosage: 160 MG, QD
     Route: 048

REACTIONS (8)
  - Dizziness [Unknown]
  - Drug ineffective [Unknown]
  - Skin ulcer [Recovering/Resolving]
  - Gait disturbance [Unknown]
  - Muscle rigidity [Unknown]
  - Blood pressure increased [Recovering/Resolving]
  - Arterial occlusive disease [Unknown]
  - Fluid retention [Unknown]

NARRATIVE: CASE EVENT DATE: 201411
